FAERS Safety Report 6972550-5 (Version None)
Quarter: 2010Q3

REPORT INFORMATION
  Report Type: 
  Country: None (occurrence: None)
  Receive Date: 20100909
  Receipt Date: 20100908
  Transmission Date: 20110219
  Serious: Yes (Other)
  Sender: FDA-Public Use
  Company Number: GR-GENZYME-CERZ-1001503

PATIENT
  Sex: Female
  Weight: 58 kg

DRUGS (1)
  1. CEREZYME [Suspect]
     Indication: GAUCHER'S DISEASE
     Dosage: 21 U/KG, Q2W
     Route: 042
     Dates: start: 20010101

REACTIONS (1)
  - LABORATORY TEST ABNORMAL [None]
